FAERS Safety Report 22143611 (Version 1)
Quarter: 2023Q1

REPORT INFORMATION
  Report Type: Report from Study
  Country: PH (occurrence: PH)
  Receive Date: 20230327
  Receipt Date: 20230327
  Transmission Date: 20230418
  Serious: Yes (Hospitalization, Other)
  Sender: FDA-Public Use
  Company Number: PH-002147023-NVSC2023PH062823

PATIENT
  Age: 37 Year
  Sex: Female

DRUGS (3)
  1. ENTRESTO [Suspect]
     Active Substance: SACUBITRIL\VALSARTAN
     Indication: Product used for unknown indication
     Dosage: 50 MG, BID
     Route: 048
  2. ATORVASTATIN [Concomitant]
     Active Substance: ATORVASTATIN
     Indication: Product used for unknown indication
     Dosage: UNK
     Route: 065
  3. SPIRONOLACTONE [Concomitant]
     Active Substance: SPIRONOLACTONE
     Indication: Product used for unknown indication
     Dosage: UNK
     Route: 065

REACTIONS (7)
  - Cerebrovascular accident [Unknown]
  - Aphasia [Recovering/Resolving]
  - Dysarthria [Recovering/Resolving]
  - Cardiac failure congestive [Recovering/Resolving]
  - Congestive cardiomyopathy [Recovering/Resolving]
  - Ejection fraction decreased [Recovering/Resolving]
  - Atrial fibrillation [Recovering/Resolving]
